FAERS Safety Report 9955992 (Version 1)
Quarter: 2014Q1

REPORT INFORMATION
  Report Type: Spontaneous
  Country: US (occurrence: US)
  Receive Date: 20140304
  Receipt Date: 20140304
  Transmission Date: 20141002
  Serious: No
  Sender: FDA-Public Use
  Company Number: US-ABBVIE-13P-163-1090053-00

PATIENT
  Age: 42 Year
  Sex: Male

DRUGS (17)
  1. HUMIRA [Suspect]
     Indication: CROHN^S DISEASE
     Dosage: ONE TIME DOSE
     Route: 058
     Dates: start: 20130426, end: 20130426
  2. HUMIRA [Suspect]
     Indication: RHEUMATOID ARTHRITIS
     Dosage: ONE TIME DOSE
     Route: 058
     Dates: start: 20130510, end: 20130510
  3. VENLAFAXINE [Concomitant]
     Indication: PRODUCT USED FOR UNKNOWN INDICATION
  4. SIMVASTATIN [Concomitant]
     Indication: PRODUCT USED FOR UNKNOWN INDICATION
  5. LISINOPRIL [Concomitant]
     Indication: PRODUCT USED FOR UNKNOWN INDICATION
  6. AMLODIPINE [Concomitant]
     Indication: PRODUCT USED FOR UNKNOWN INDICATION
  7. NAPROXEN [Concomitant]
     Indication: PRODUCT USED FOR UNKNOWN INDICATION
  8. AZATHIOPRINE [Concomitant]
     Indication: PRODUCT USED FOR UNKNOWN INDICATION
  9. LORAZEPAM [Concomitant]
     Indication: PRODUCT USED FOR UNKNOWN INDICATION
  10. AMPHETAMINE SALTS [Concomitant]
     Indication: PRODUCT USED FOR UNKNOWN INDICATION
  11. FLUTICASONE [Concomitant]
     Indication: PRODUCT USED FOR UNKNOWN INDICATION
     Route: 045
  12. VILAZODONE [Concomitant]
     Indication: PRODUCT USED FOR UNKNOWN INDICATION
  13. ESCITALOPRAM [Concomitant]
     Indication: PRODUCT USED FOR UNKNOWN INDICATION
  14. PREDNISONE [Concomitant]
     Indication: PRODUCT USED FOR UNKNOWN INDICATION
  15. CELECOXIB [Concomitant]
     Indication: PRODUCT USED FOR UNKNOWN INDICATION
  16. DIPHENOXYLATE/ATROPINE [Concomitant]
     Indication: PRODUCT USED FOR UNKNOWN INDICATION
  17. CIPROFLOXCIN [Concomitant]
     Indication: PRODUCT USED FOR UNKNOWN INDICATION

REACTIONS (1)
  - Injury associated with device [Recovered/Resolved]
